FAERS Safety Report 7993966-4 (Version None)
Quarter: 2011Q4

REPORT INFORMATION
  Report Type: 
  Country: None (occurrence: None)
  Receive Date: 20111220
  Receipt Date: 20111208
  Transmission Date: 20120403
  Serious: Yes (Hospitalization, Other)
  Sender: FDA-Public Use
  Company Number: US-BAYER-2011-040530

PATIENT
  Age: 28 Year
  Sex: Female
  Weight: 46 kg

DRUGS (7)
  1. MULTIVITAMINS AND IRON [Concomitant]
  2. YASMIN [Suspect]
     Indication: CONTRACEPTION
     Dosage: UNK
     Dates: start: 20060101, end: 20070101
  3. GRAPE SEED EXTRACT [Concomitant]
  4. ISONIAZID [Concomitant]
     Indication: TUBERCULOSIS
     Dosage: 500 MG, QD
  5. YAZ [Suspect]
     Indication: CONTRACEPTION
     Dosage: UNK
     Dates: start: 20070101, end: 20090101
  6. IMITREX [Concomitant]
     Dosage: UNK
     Dates: start: 20040101
  7. ALBUTEROL [Concomitant]

REACTIONS (8)
  - ANXIETY [None]
  - CHOLECYSTITIS CHRONIC [None]
  - GENERAL PHYSICAL HEALTH DETERIORATION [None]
  - ABDOMINAL PAIN [None]
  - INJURY [None]
  - CHOLELITHIASIS [None]
  - PAIN [None]
  - EMOTIONAL DISTRESS [None]
